FAERS Safety Report 8922039 (Version 1)
Quarter: 2012Q4

REPORT INFORMATION
  Report Type: Spontaneous
  Country: US (occurrence: None)
  Receive Date: 20121120
  Receipt Date: 20121120
  Transmission Date: 20130627
  Serious: Yes (Other)
  Sender: FDA-Public Use
  Company Number: None

PATIENT
  Age: 55 Year
  Sex: Female

DRUGS (1)
  1. ENBREL [Suspect]
     Indication: RA
     Dosage: 50mg qw sq
     Route: 058
     Dates: start: 20121028, end: 20121104

REACTIONS (7)
  - Swelling [None]
  - Joint swelling [None]
  - Joint swelling [None]
  - Local swelling [None]
  - Oedema [None]
  - Dyspnoea [None]
  - Urine abnormality [None]
